FAERS Safety Report 7646606-8 (Version None)
Quarter: 2011Q3

REPORT INFORMATION
  Report Type: 
  Country: None (occurrence: None)
  Receive Date: 20110801
  Receipt Date: 20110727
  Transmission Date: 20111222
  Serious: No
  Sender: FDA-Public Use
  Company Number: US-BAYER-2011-065295

PATIENT
  Age: 40 Year
  Sex: Male

DRUGS (5)
  1. ZOLPIDEM [Concomitant]
  2. HYDROCODONE BITARTRATE [Concomitant]
  3. SORAFENIB (RAF KINASE INHIBITOR) [Suspect]
     Indication: GERM CELL CANCER
     Dosage: 400 MG, BID
     Route: 048
  4. LORATADINE [Concomitant]
  5. ENOXAPARIN [Concomitant]

REACTIONS (4)
  - RASH ERYTHEMATOUS [None]
  - RASH [None]
  - RASH FOLLICULAR [None]
  - RASH PAPULAR [None]
